FAERS Safety Report 6200138-2 (Version None)
Quarter: 2009Q2

REPORT INFORMATION
  Report Type: 
  Country: None (occurrence: None)
  Receive Date: 20090522
  Receipt Date: 20070719
  Transmission Date: 20091009
  Serious: No
  Sender: FDA-Public Use
  Company Number: US-ALEXION-A200700034

PATIENT
  Sex: Female
  Weight: 62.132 kg

DRUGS (16)
  1. SOLIRIS [Suspect]
     Indication: PAROXYSMAL NOCTURNAL HAEMOGLOBINURIA
     Dosage: 600 MG, SINGLE
     Route: 042
     Dates: start: 20070605, end: 20070605
  2. SOLIRIS [Suspect]
     Dosage: 600 MG, SINGLE
     Route: 042
     Dates: start: 20070612, end: 20070612
  3. SOLIRIS [Suspect]
     Dosage: 600 MG, SINGLE
     Route: 042
     Dates: start: 20070619, end: 20070619
  4. SOLIRIS [Suspect]
     Dosage: 600 MG, SINGLE
     Route: 042
     Dates: start: 20070626, end: 20070626
  5. SOLIRIS [Suspect]
     Dosage: 900 MG, SINGLE
     Route: 042
     Dates: start: 20070703, end: 20070703
  6. SOLIRIS [Suspect]
     Dosage: 900 MG, SINGLE
     Route: 042
     Dates: start: 20070717, end: 20070717
  7. XANAX [Concomitant]
     Indication: ANXIETY
     Dosage: 1 MG, QD, HS
     Route: 048
  8. FLUOXETINE HCL [Concomitant]
     Indication: ANXIETY
     Dosage: 20 MG, QD, AM
     Route: 048
  9. PREDNISONE [Concomitant]
     Dosage: 20 MG, QOD
     Route: 048
  10. PREDNISONE [Concomitant]
     Dosage: 10 MG, QOD
     Route: 048
  11. TOPAMAX [Concomitant]
     Indication: MIGRAINE
     Dosage: 50 MG, BID
     Route: 048
  12. ZYRTEC [Concomitant]
     Indication: HYPERSENSITIVITY
     Dosage: 10 MG, UNK
     Route: 048
  13. COUMADIN [Concomitant]
     Indication: THROMBOSIS
     Dosage: 7.5 MG, QD
     Route: 048
  14. COUMADIN [Concomitant]
     Dosage: 2.5 MG, TUES AND THURS
     Route: 048
  15. DECADRON [Concomitant]
     Indication: PREMEDICATION
  16. BENADRYL [Concomitant]
     Indication: PREMEDICATION

REACTIONS (8)
  - ALOPECIA [None]
  - BACK PAIN [None]
  - DYSPHONIA [None]
  - DYSPNOEA [None]
  - EYE INFECTION [None]
  - FATIGUE [None]
  - HEADACHE [None]
  - SNEEZING [None]
